FAERS Safety Report 9668173 (Version 2)
Quarter: 2013Q4

REPORT INFORMATION
  Report Type: Spontaneous
  Country: GB (occurrence: None)
  Receive Date: 20131101
  Receipt Date: 20131112
  Transmission Date: 20140711
  Serious: Yes (Death, Other)
  Sender: FDA-Public Use
  Company Number: 2013MPI00667

PATIENT
  Sex: Female

DRUGS (1)
  1. ADCETRIS (BRENTUXIMAB VEDOTIN) INJECTION [Suspect]
     Indication: HODGKIN^S DISEASE REFRACTORY
     Dates: start: 2011, end: 2012

REACTIONS (3)
  - Emotional distress [None]
  - Malignant neoplasm progression [None]
  - Hodgkin^s disease refractory [None]
